FAERS Safety Report 8138787-7 (Version None)
Quarter: 2012Q1

REPORT INFORMATION
  Report Type: 
  Country: None (occurrence: None)
  Receive Date: 20120213
  Receipt Date: 20120202
  Transmission Date: 20120608
  Serious: Yes (Other)
  Sender: FDA-Public Use
  Company Number: FR-007655

PATIENT
  Age: 40 Year
  Sex: Female
  Weight: 50 kg

DRUGS (1)
  1. MENOPUR [Suspect]
     Indication: OVULATION INDUCTION
     Dosage: 75 IU QD, SUBCUTANEOUS
     Route: 058
     Dates: start: 20111101, end: 20111101

REACTIONS (5)
  - TREMOR [None]
  - TACHYCARDIA [None]
  - ALTERED STATE OF CONSCIOUSNESS [None]
  - MALAISE [None]
  - NAUSEA [None]
